FAERS Safety Report 13013270 (Version 1)
Quarter: 2016Q4

REPORT INFORMATION
  Report Type: Spontaneous
  Country: NL (occurrence: NL)
  Receive Date: 20161209
  Receipt Date: 20161209
  Transmission Date: 20170207
  Serious: Yes (Other)
  Sender: FDA-Public Use
  Company Number: NL-JNJFOC-20161207158

PATIENT

DRUGS (1)
  1. RISPERIDONE. [Suspect]
     Active Substance: RISPERIDONE
     Indication: SCHIZOPHRENIA
     Dosage: 1.25-5 MG DAILY, MEAN DOSE 2.4 MG AT 2 WEEKS AND 2.5 MG AT 6 WEEKS
     Route: 065

REACTIONS (1)
  - Drug dependence [Unknown]
